FAERS Safety Report 10096727 (Version 1)
Quarter: 2014Q2

REPORT INFORMATION
  Report Type: Spontaneous
  Country: US (occurrence: None)
  Receive Date: 20140421
  Receipt Date: 20140421
  Transmission Date: 20141212
  Serious: Yes (Hospitalization)
  Sender: FDA-Public Use
  Company Number: None

PATIENT
  Sex: Female
  Weight: 65.8 kg

DRUGS (4)
  1. CARFILZOMIB [Suspect]
     Indication: SMALL CELL LUNG CANCER
     Route: 042
     Dates: start: 20140306, end: 20140307
  2. IRINOTECAN [Suspect]
     Dosage: 125
     Dates: start: 20140316
  3. DEXAMETHASONE [Concomitant]
  4. SYNTHROID [Concomitant]

REACTIONS (2)
  - Fatigue [None]
  - Anaemia [None]
